FAERS Safety Report 15324870 (Version 12)
Quarter: 2019Q3

REPORT INFORMATION
  Report Type: Spontaneous
  Country: CA (occurrence: CA)
  Receive Date: 20180828
  Receipt Date: 20190902
  Transmission Date: 20191004
  Serious: Yes (Hospitalization, Other)
  Sender: FDA-Public Use
  Company Number: CA-CELLTRION INC.-2018CA021954

PATIENT

DRUGS (8)
  1. INFLECTRA [Suspect]
     Active Substance: INFLIXIMAB-DYYB
     Dosage: 5 MG/KG, AT 0, 2, 6 WEEKS, THEN EVERY 8 WEEKS
     Route: 042
     Dates: start: 20180917, end: 20180917
  2. CORTISONE [Concomitant]
     Active Substance: CORTISONE
     Dosage: UNK
     Route: 065
     Dates: start: 20180904
  3. INFLECTRA [Suspect]
     Active Substance: INFLIXIMAB-DYYB
     Dosage: 5 MG/KG, AT 0, 2, 6 WEEKS, THEN EVERY 8 WEEKS
     Route: 042
     Dates: start: 20181017, end: 20181017
  4. INFLECTRA [Suspect]
     Active Substance: INFLIXIMAB-DYYB
     Dosage: 5 MG/KG, AT 0, 2, 6 WEEKS, THEN EVERY 8 WEEKS
     Route: 042
     Dates: start: 20181130, end: 20181130
  5. INFLECTRA [Suspect]
     Active Substance: INFLIXIMAB-DYYB
     Dosage: 5 MG/KG, AT 0, 2, 6 WEEKS, THEN EVERY 8 WEEKS
     Route: 042
     Dates: start: 20180820, end: 20180820
  6. PREDNISONE. [Concomitant]
     Active Substance: PREDNISONE
     Dosage: UNK
     Route: 065
     Dates: start: 20180308
  7. INFLECTRA [Suspect]
     Active Substance: INFLIXIMAB-DYYB
     Indication: CROHN^S DISEASE
     Dosage: 5 MG/KG, 0, 2, 6 WEEKS, THEN EVERY 8 WEEKS
     Route: 042
     Dates: start: 20180728, end: 20180728
  8. INFLECTRA [Suspect]
     Active Substance: INFLIXIMAB-DYYB
     Dosage: 5MG/KG AT 0, 2, 6 WEEKS, THEN EVERY 8 WEEKS
     Route: 042
     Dates: start: 20180728, end: 20181130

REACTIONS (14)
  - Inappropriate schedule of product administration [Unknown]
  - Condition aggravated [Unknown]
  - Diarrhoea [Unknown]
  - Incontinence [Unknown]
  - Gastrooesophageal reflux disease [Unknown]
  - Abdominal pain upper [Unknown]
  - Off label use [Unknown]
  - Incorrect dose administered [Unknown]
  - Rectal haemorrhage [Not Recovered/Not Resolved]
  - Dry skin [Unknown]
  - Abdominal pain [Not Recovered/Not Resolved]
  - Hepatitis C [Unknown]
  - Mental disorder [Unknown]
  - Malaise [Unknown]

NARRATIVE: CASE EVENT DATE: 2018
